FAERS Safety Report 4345207-7 (Version None)
Quarter: 2004Q2

REPORT INFORMATION
  Report Type: 
  Country: None (occurrence: None)
  Receive Date: 20040420
  Receipt Date: 20040407
  Transmission Date: 20050107
  Serious: Yes (Hospitalization, Other)
  Sender: FDA-Public Use
  Company Number: 2004024143

PATIENT
  Age: 2 Month
  Sex: Female

DRUGS (3)
  1. PRODILATIN   (FOSPHENYTOIN SODIUM) [Suspect]
     Indication: ILL-DEFINED DISORDER
     Dosage: 475 MG, INTRAVENOUS
     Route: 042
     Dates: start: 20040227, end: 20040227
  2. DIAZEPAM [Concomitant]
  3. UVESTEROL (ASCORBIC ACID, ERGOCALCIFEROL, RETINOL, TOCOPHEROL) [Concomitant]

REACTIONS (8)
  - CONVULSION [None]
  - DYSKINESIA [None]
  - HYPERGLYCAEMIA [None]
  - MEDICATION ERROR [None]
  - NAUSEA [None]
  - NERVOUS SYSTEM DISORDER [None]
  - OVERDOSE [None]
  - SOMNOLENCE [None]
